FAERS Safety Report 7357718-0 (Version None)
Quarter: 2011Q1

REPORT INFORMATION
  Report Type: 
  Country: None (occurrence: None)
  Receive Date: 20110317
  Receipt Date: 20110308
  Transmission Date: 20110831
  Serious: No
  Sender: FDA-Public Use
  Company Number: US-JNJFOC-20110303883

PATIENT
  Sex: Female
  Weight: 63.5 kg

DRUGS (4)
  1. NEURONTIN [Concomitant]
     Indication: PAIN
     Route: 048
  2. DURAGESIC-50 [Suspect]
     Indication: PAIN IN EXTREMITY
     Route: 062
  3. PHENERGAN [Concomitant]
     Indication: PAIN
     Route: 048
  4. DURAGESIC-50 [Suspect]
     Route: 062

REACTIONS (3)
  - NAUSEA [None]
  - DIARRHOEA [None]
  - DRUG DOSE OMISSION [None]
